FAERS Safety Report 9817341 (Version 2)
Quarter: 2014Q1

REPORT INFORMATION
  Report Type: Report from Study
  Country: FR (occurrence: FR)
  Receive Date: 20140115
  Receipt Date: 20140115
  Transmission Date: 20141002
  Serious: Yes (Death, Other)
  Sender: FDA-Public Use
  Company Number: FR-ROCHE-1215333

PATIENT
  Sex: 0

DRUGS (11)
  1. PEG-INTERFERON ALFA 2A [Suspect]
     Indication: HEPATITIS C
     Route: 065
  2. RIBAVIRIN [Suspect]
     Indication: HEPATITIS C
     Dosage: DOSE REDUCTION IN SOME PATIENTS
     Route: 065
  3. MYCOPHENOLATE MOFETIL [Suspect]
     Indication: IMMUNISATION
     Dosage: 0.5 TO 2 G/DAY
     Route: 065
  4. TELAPREVIR [Suspect]
     Indication: HEPATITIS C
     Route: 065
  5. BOCEPREVIR [Suspect]
     Indication: HEPATITIS C
     Route: 065
  6. PEGINTERFERON ALFA-2B [Suspect]
     Indication: HEPATITIS C
     Route: 065
  7. REBETOL [Suspect]
     Indication: HEPATITIS C
     Route: 065
  8. CYCLOSPORINE [Suspect]
     Indication: IMMUNISATION
     Dosage: 50 TO 150 NG/ML
     Route: 065
  9. TACROLIMUS [Suspect]
     Indication: IMMUNISATION
     Dosage: 5 TO 10 NG/ML
     Route: 065
  10. EVEROLIMUS [Suspect]
     Indication: IMMUNISATION
     Dosage: 3 TO 8 NG/ML
     Route: 065
  11. PREDNISONE [Suspect]
     Indication: IMMUNISATION
     Dosage: 3 TO 12.5 MG/DAY
     Route: 065

REACTIONS (15)
  - Sepsis [Fatal]
  - Urinary tract infection [Fatal]
  - Anaemia [Unknown]
  - Neutropenia [Unknown]
  - Thrombocytopenia [Unknown]
  - Pneumonia [Unknown]
  - Cytomegalovirus infection [Unknown]
  - Pneumocystis jirovecii pneumonia [Unknown]
  - Aspergillus infection [Unknown]
  - Erysipelas [Unknown]
  - Peritonitis [Unknown]
  - Renal failure [Unknown]
  - Anal pruritus [Unknown]
  - Treatment failure [Unknown]
  - Diabetes mellitus [Unknown]
